FAERS Safety Report 8538441-3 (Version None)
Quarter: 2012Q3

REPORT INFORMATION
  Report Type: 
  Country: None (occurrence: None)
  Receive Date: 20120712
  Receipt Date: 20120627
  Transmission Date: 20120928
  Serious: Yes (Disabling)
  Sender: FDA-Public Use
  Company Number: DSJ-2011-12612

PATIENT
  Age: 84 Year
  Sex: Female
  Weight: 43.4 kg

DRUGS (3)
  1. OLMESARTAN MEDOXOMIL [Suspect]
     Indication: ESSENTIAL HYPERTENSION
     Dosage: 10 MG, PER ORAL 20 MG, PER ORAL
     Route: 048
     Dates: start: 20091110, end: 20100204
  2. OLMESARTAN MEDOXOMIL [Suspect]
     Indication: ESSENTIAL HYPERTENSION
     Dosage: 10 MG, PER ORAL 20 MG, PER ORAL
     Route: 048
     Dates: start: 20100205, end: 20110204
  3. BLOPRESS (CANDESARTAN CILEXETIL) (CANDESARTAN CILEXETIL) [Concomitant]

REACTIONS (1)
  - THROMBOCYTOPENIA [None]
